FAERS Safety Report 20151019 (Version 1)
Quarter: 2021Q4

REPORT INFORMATION
  Report Type: Spontaneous
  Country: US (occurrence: None)
  Receive Date: 20211203
  Receipt Date: 20211203
  Transmission Date: 20220303
  Serious: Yes (Other)
  Sender: FDA-Public Use
  Company Number: None

PATIENT
  Age: 52 Year
  Sex: Male
  Weight: 98 kg

DRUGS (12)
  1. TACROLIMUS [Suspect]
     Active Substance: TACROLIMUS
     Indication: Renal transplant
     Dosage: FREQUENCY : TWICE A DAY;?
     Route: 048
     Dates: start: 20191016, end: 20211201
  2. TACROLIMUS [Suspect]
     Active Substance: TACROLIMUS
     Indication: Renal transplant
     Dosage: FREQUENCY : TWICE A DAY;?
     Route: 048
     Dates: start: 20201020, end: 20211201
  3. ALLOPURINOL [Concomitant]
     Active Substance: ALLOPURINOL
  4. CINACALCET [Concomitant]
     Active Substance: CINACALCET
  5. FAMOTIDINE [Concomitant]
     Active Substance: FAMOTIDINE
  6. FLUCONAZOLE [Concomitant]
     Active Substance: FLUCONAZOLE
  7. FUROSEMIDE [Concomitant]
     Active Substance: FUROSEMIDE
  8. MAGNESIUM OXIDE [Concomitant]
     Active Substance: MAGNESIUM OXIDE
  9. MYCOPHENOLATE [Concomitant]
  10. NIFEDIPINE [Concomitant]
     Active Substance: NIFEDIPINE
  11. PREDNISONE [Concomitant]
     Active Substance: PREDNISONE
  12. VITAMIN D NOS [Concomitant]
     Active Substance: VITAMIN D NOS

REACTIONS (2)
  - Basal cell carcinoma [None]
  - Therapy cessation [None]

NARRATIVE: CASE EVENT DATE: 20211201
